FAERS Safety Report 8714760 (Version 3)
Quarter: 2013Q2

REPORT INFORMATION
  Report Type: Report from Study
  Country: JP (occurrence: JP)
  Receive Date: 20120809
  Receipt Date: 20130416
  Transmission Date: 20140414
  Serious: Yes (Hospitalization, Other)
  Sender: FDA-Public Use
  Company Number: JP-BRISTOL-MYERS SQUIBB COMPANY-16832842

PATIENT
  Age: 49 Year
  Sex: Male

DRUGS (4)
  1. REYATAZ [Suspect]
     Indication: HIV INFECTION
     Dosage: 1DF: 300-400MG?01APR04-22DEC11?24DEC11-ONG
     Route: 048
     Dates: start: 20040401
  2. COMBIVIR [Suspect]
     Indication: HIV INFECTION
     Dosage: 1APR04-22DEC11?16JAN12-ONG
     Route: 048
     Dates: start: 20040401
  3. NORVIR [Suspect]
     Indication: HIV INFECTION
     Dosage: 06OCT05-22DEC11?24DEC11-ONG
     Route: 048
     Dates: start: 20051006
  4. ALOSITOL [Concomitant]
     Indication: HYPERURICAEMIA
     Dosage: ALOSTIOL TABS
     Route: 048
     Dates: start: 20040401

REACTIONS (2)
  - Hyperkalaemia [Recovering/Resolving]
  - Renal failure chronic [Not Recovered/Not Resolved]
